FAERS Safety Report 20045913 (Version 1)
Quarter: 2021Q4

REPORT INFORMATION
  Report Type: Spontaneous
  Country: JP (occurrence: JP)
  Receive Date: 20211108
  Receipt Date: 20211108
  Transmission Date: 20220303
  Serious: Yes (Other)
  Sender: FDA-Public Use
  Company Number: JP-PFIZER INC-202101450871

PATIENT
  Sex: Female

DRUGS (1)
  1. ENBREL [Suspect]
     Active Substance: ETANERCEPT
     Indication: Product used for unknown indication
     Dosage: UNK UNK, QWK
     Route: 058

REACTIONS (5)
  - Rheumatoid arthritis [Unknown]
  - Vision blurred [Unknown]
  - Palpitations [Unknown]
  - Injection site haemorrhage [Unknown]
  - Injection site pain [Unknown]
